FAERS Safety Report 8048644-2 (Version None)
Quarter: 2012Q1

REPORT INFORMATION
  Report Type: 
  Country: None (occurrence: None)
  Receive Date: 20120110
  Receipt Date: 20111229
  Transmission Date: 20120608
  Serious: Yes (Hospitalization)
  Sender: FDA-Public Use
  Company Number: B0773028A

PATIENT
  Age: 15 Month

DRUGS (2)
  1. CEFTAZIDIME SODIUM [Suspect]
     Indication: INFECTION
     Dates: start: 20111026, end: 20111028
  2. CEFMENOXIME [Concomitant]

REACTIONS (3)
  - PYREXIA [None]
  - ANAPHYLACTIC REACTION [None]
  - EPIDERMOLYSIS BULLOSA [None]
